FAERS Safety Report 12479541 (Version 1)
Quarter: 2016Q2

REPORT INFORMATION
  Report Type: Spontaneous
  Country: US (occurrence: US)
  Receive Date: 20160620
  Receipt Date: 20160620
  Transmission Date: 20160815
  Serious: Yes (Other)
  Sender: FDA-Public Use
  Company Number: US-CIPLA LTD.-2016US07155

PATIENT

DRUGS (1)
  1. FOSINOPRIL SODIUM AND HYDROCHLORTHAIZID INVAGEN PHARMACEUTICALS [Suspect]
     Active Substance: FOSINOPRIL SODIUM\HYDROCHLOROTHIAZIDE
     Indication: BLOOD PRESSURE MEASUREMENT
     Dosage: UNK
     Route: 065

REACTIONS (4)
  - Headache [Unknown]
  - Disorientation [Unknown]
  - Product substitution issue [Unknown]
  - Drug ineffective [Unknown]
